FAERS Safety Report 5460303-9 (Version None)
Quarter: 2007Q3

REPORT INFORMATION
  Report Type: 
  Country: None (occurrence: None)
  Receive Date: 20070919
  Receipt Date: 20070620
  Transmission Date: 20080115
  Serious: Yes (Other)
  Sender: FDA-Public Use
  Company Number: US-ASTRAZENECA-2007UW14825

PATIENT
  Age: 52 Year
  Sex: Female

DRUGS (4)
  1. SEROQUEL [Suspect]
     Indication: OBSESSIVE-COMPULSIVE DISORDER
     Route: 048
  2. SEROQUEL [Suspect]
     Indication: PANIC ATTACK
     Route: 048
  3. RISPERDAL [Suspect]
     Indication: PANIC ATTACK
  4. RISPERDAL [Suspect]
     Indication: OBSESSIVE-COMPULSIVE DISORDER

REACTIONS (1)
  - TARDIVE DYSKINESIA [None]
